FAERS Safety Report 17757149 (Version 2)
Quarter: 2020Q2

REPORT INFORMATION
  Report Type: Other
  Country: FR (occurrence: FR)
  Receive Date: 20200506
  Receipt Date: 20200521
  Transmission Date: 20200714
  Serious: Yes (Hospitalization)
  Sender: FDA-Public Use
  Company Number: FR-CADILA HEALTHCARE LIMITED-FR-ZYDUS-050202

PATIENT

DRUGS (8)
  1. AMLODIPINE [Suspect]
     Active Substance: AMLODIPINE BESYLATE
     Indication: HYPERTENSION
     Dosage: 10 MILLIGRAM
     Route: 048
  2. IPILIMUMAB [Suspect]
     Active Substance: IPILIMUMAB
     Indication: RENAL CANCER
     Dosage: 250 MILLIGRAM
     Route: 041
     Dates: start: 20200317, end: 20200317
  3. NIVOLUMAB [Suspect]
     Active Substance: NIVOLUMAB
     Indication: RENAL CANCER
     Dosage: 90 MILLIGRAM
     Route: 041
     Dates: start: 20200317, end: 20200317
  4. CYANOCOBALAMINE [Suspect]
     Active Substance: CYANOCOBALAMIN
     Dosage: INCONNUE
     Route: 048
     Dates: end: 20200319
  5. MOGADON [Suspect]
     Active Substance: NITRAZEPAM
     Indication: PRODUCT USED FOR UNKNOWN INDICATION
     Route: 048
  6. ATORVASTATIN [Suspect]
     Active Substance: ATORVASTATIN
     Indication: DYSLIPIDAEMIA
     Dosage: 20 MILLIGRAM, QD
     Route: 048
     Dates: end: 20200327
  7. ACIDE FOLIQUE [Suspect]
     Active Substance: FOLIC ACID
     Indication: FOLATE DEFICIENCY
     Dosage: 5 MILLIGRAM
     Route: 048
     Dates: end: 20200327
  8. CYANOCOBALAMINE [Suspect]
     Active Substance: CYANOCOBALAMIN
     Indication: VITAMIN B12 DEFICIENCY
     Dosage: UNK
     Route: 048
     Dates: end: 20200319

REACTIONS (2)
  - Cardiac failure [Not Recovered/Not Resolved]
  - Pulmonary oedema [Recovered/Resolved]

NARRATIVE: CASE EVENT DATE: 20200327
